FAERS Safety Report 22601558 (Version 4)
Quarter: 2023Q4

REPORT INFORMATION
  Report Type: Spontaneous
  Country: US (occurrence: US)
  Receive Date: 20230614
  Receipt Date: 20231218
  Transmission Date: 20240110
  Serious: Yes (Other)
  Sender: FDA-Public Use
  Company Number: US-PFIZER INC-PV202300105308

PATIENT
  Age: 67 Year
  Sex: Male

DRUGS (1)
  1. CIBINQO [Suspect]
     Active Substance: ABROCITINIB
     Dosage: TAKE TWO TABLETS OF 100 MG ONCE A DAY
     Route: 048

REACTIONS (1)
  - Cardiac disorder [Unknown]
